FAERS Safety Report 16432378 (Version 2)
Quarter: 2019Q3

REPORT INFORMATION
  Report Type: Spontaneous
  Country: US (occurrence: US)
  Receive Date: 20190614
  Receipt Date: 20190719
  Transmission Date: 20191004
  Serious: Yes (Death, Hospitalization)
  Sender: FDA-Public Use
  Company Number: US-PARI RESPIRATORY EQUIPMENT, INC.-2019PAR00047

PATIENT
  Age: 10 Year
  Sex: Female

DRUGS (21)
  1. BACITRACIN OPHTHALMIC [Concomitant]
     Dosage: 1 DOSAGE UNITS, 4X/DAY, TO EACH EYE AS NEEDED
  2. CBD OIL [Concomitant]
     Active Substance: CANNABIDIOL\HERBALS
     Dosage: 0.6 ML, 3X/DAY
  3. REFRESH PM OPHTHALMIC OINTMENT [Concomitant]
     Dosage: 1 DOSAGE UNITS, 4X/DAY, AS NEEDED
  4. GABAPENTIN. [Concomitant]
     Active Substance: GABAPENTIN
     Dosage: 150 MG, 1X/DAY
  5. VIMPAT [Concomitant]
     Active Substance: LACOSAMIDE
     Dosage: 5 ML, 2X/DAY
     Route: 048
  6. PEPTAMEN JR [Concomitant]
     Dosage: 350 ML NOCTURNAL CONTINUOUS FEEDS, 350 ML TOTAL OVER 8 HOURS
  7. VIMPAT [Concomitant]
     Active Substance: LACOSAMIDE
     Dosage: 50 MG 2X/DAY
  8. CBD OIL [Concomitant]
     Active Substance: CANNABIDIOL\HERBALS
     Dosage: 0.5 ML, 2X/DAY
  9. TYLENOL [Concomitant]
     Active Substance: ACETAMINOPHEN
     Dosage: 10 ML EVERY 4 HOURS AS NEEDED
     Route: 048
  10. CLONAZEPAM. [Concomitant]
     Active Substance: CLONAZEPAM
     Dosage: 1 TO 2 TABLETS, 2X/DAY AS NEEDED
  11. GABAPENTIN. [Concomitant]
     Active Substance: GABAPENTIN
     Dosage: 3 ML, 2X/DAY
     Route: 048
  12. CHILDRENS MOTRIN [Concomitant]
     Active Substance: IBUPROFEN
     Dosage: 10 ML EVERY 6 HOURS AS NEEDED
     Route: 048
  13. NOVOLOG [Concomitant]
     Active Substance: INSULIN ASPART
     Dosage: AS DIRECTED (MAX 25 UNITES A DAY)
     Route: 058
  14. TOBI [Concomitant]
     Active Substance: TOBRAMYCIN
     Dosage: 5 ML, 2X/DAY
  15. DIAZEPAM. [Concomitant]
     Active Substance: DIAZEPAM
     Dosage: 6.25 ML, 1X/DAY AT BEDTIME
     Route: 048
  16. PREVACID [Concomitant]
     Active Substance: LANSOPRAZOLE
     Dosage: 30 MG, 1X/DAY
     Route: 048
  17. KITABIS PAK [Suspect]
     Active Substance: TOBRAMYCIN
     Indication: CYSTIC FIBROSIS
     Dosage: 5 ML, 2X/DAY, ALTERNATING EVERY OTHER MONTH
     Dates: start: 201901
  18. DIASTAT ACUDIAL [Concomitant]
     Active Substance: DIAZEPAM
     Dosage: 10 MG, AS NEEDED
     Route: 054
  19. HIZENTRA SUBCUTANEOUS [Concomitant]
     Dosage: 3 G, 1X/WEEK
     Route: 058
  20. EPIPEN JR [Concomitant]
     Active Substance: EPINEPHRINE
     Dosage: 0.15 MG, ONCE, AS NEEDED
     Route: 030
  21. PEPTAMEN JR [Concomitant]
     Dosage: 50 ML EVERY 2 HOURS DURING THE DAY

REACTIONS (12)
  - Acute respiratory failure [Recovered/Resolved]
  - Urine analysis abnormal [Recovering/Resolving]
  - Myoclonus [Recovered/Resolved]
  - Death [Fatal]
  - Pelvi-ureteric obstruction [Recovering/Resolving]
  - Obstructive airways disorder [Unknown]
  - Pain [Unknown]
  - Somnolence [Unknown]
  - Acute kidney injury [Recovering/Resolving]
  - Erythema [Recovered/Resolved]
  - Urinary retention [Recovering/Resolving]
  - Pneumonia aspiration [Recovering/Resolving]

NARRATIVE: CASE EVENT DATE: 201901
